FAERS Safety Report 24720576 (Version 1)
Quarter: 2024Q4

REPORT INFORMATION
  Report Type: Spontaneous
  Country: US (occurrence: US)
  Receive Date: 20241211
  Receipt Date: 20241211
  Transmission Date: 20250115
  Serious: No
  Sender: ZYDUS PHARM
  Company Number: US-CADILA HEALTHCARE LIMITED-US-ZYDUS-111495

PATIENT

DRUGS (1)
  1. DILTIAZEM HYDROCHLORIDE [Suspect]
     Active Substance: DILTIAZEM HYDROCHLORIDE
     Indication: Hypertension
     Dosage: 240 MILLIGRAM
     Route: 065
     Dates: start: 2022, end: 2024

REACTIONS (3)
  - Drug ineffective [Unknown]
  - Headache [Unknown]
  - Myalgia [Unknown]
